FAERS Safety Report 21117944 (Version 2)
Quarter: 2022Q3

REPORT INFORMATION
  Report Type: Spontaneous
  Country: CA (occurrence: None)
  Receive Date: 20220722
  Receipt Date: 20220910
  Transmission Date: 20221027
  Serious: Yes (Other)
  Sender: FDA-Public Use
  Company Number: CA-ROCHE-3137288

PATIENT
  Sex: Male
  Weight: 82 kg

DRUGS (1)
  1. HEMLIBRA [Suspect]
     Active Substance: EMICIZUMAB-KXWH
     Indication: Factor VIII deficiency
     Route: 058
     Dates: start: 20220707

REACTIONS (5)
  - Injection site pruritus [Recovering/Resolving]
  - Fatigue [Unknown]
  - Arthralgia [Unknown]
  - Injection site erythema [Recovering/Resolving]
  - Type III immune complex mediated reaction [Unknown]
